FAERS Safety Report 10934675 (Version 2)
Quarter: 2015Q2

REPORT INFORMATION
  Report Type: Spontaneous
  Country: JP (occurrence: JP)
  Receive Date: 20150320
  Receipt Date: 20150428
  Transmission Date: 20150821
  Serious: Yes (Disabling)
  Sender: FDA-Public Use
  Company Number: JP-ELI_LILLY_AND_COMPANY-JP201411011168

PATIENT
  Age: 7 Year
  Sex: Male
  Weight: 22.4 kg

DRUGS (3)
  1. FERROMIA [Concomitant]
     Active Substance: FERROUS CITRATE
     Indication: IRON DEFICIENCY ANAEMIA
     Dosage: 0.3 G, BID
     Route: 048
     Dates: start: 20121228, end: 20140528
  2. TRACLEER [Concomitant]
     Active Substance: BOSENTAN\BOSENTAN MONOHYDRATE
     Indication: PULMONARY ARTERIAL HYPERTENSION
     Dosage: 40 MG, BID
     Route: 048
     Dates: end: 20140528
  3. ADCIRCA [Suspect]
     Active Substance: TADALAFIL
     Indication: PULMONARY ARTERIAL HYPERTENSION
     Dosage: 20 MG, QD
     Route: 048
     Dates: start: 20121227, end: 20140823

REACTIONS (2)
  - Retinal vein occlusion [Not Recovered/Not Resolved]
  - Hepatic function abnormal [Unknown]

NARRATIVE: CASE EVENT DATE: 201405
